FAERS Safety Report 8573201-9 (Version None)
Quarter: 2012Q3

REPORT INFORMATION
  Report Type: 
  Country: None (occurrence: None)
  Receive Date: 20120806
  Receipt Date: 20120802
  Transmission Date: 20120928
  Serious: Yes (Other)
  Sender: FDA-Public Use
  Company Number: US-BAYER-2012-078347

PATIENT
  Age: 31 Year
  Sex: Female

DRUGS (1)
  1. MIRENA [Suspect]
     Indication: CONTRACEPTION
     Dosage: 20 MCG/24HR, CONT
     Route: 015
     Dates: start: 20110928

REACTIONS (5)
  - VAGINITIS BACTERIAL [None]
  - ALOPECIA [None]
  - ABDOMINAL PAIN LOWER [None]
  - URTICARIA [None]
  - GENITAL HAEMORRHAGE [None]
